FAERS Safety Report 5976078-0 (Version None)
Quarter: 2008Q4

REPORT INFORMATION
  Report Type: 
  Country: None (occurrence: None)
  Receive Date: 20081124
  Receipt Date: 20080611
  Transmission Date: 20090506
  Serious: Yes (Other)
  Sender: FDA-Public Use
  Company Number: 49346

PATIENT
  Age: 78 Year
  Sex: Female
  Weight: 90.7194 kg

DRUGS (10)
  1. AMIODARONE HCL [Suspect]
     Indication: VASCULAR GRAFT
     Dosage: IV
     Route: 042
     Dates: start: 20080124, end: 20080129
  2. CENTRUM SILVER [Concomitant]
  3. VITAMIN B COMPLEX CAP [Concomitant]
  4. ATENOLOL [Concomitant]
  5. LISINOPRIL [Concomitant]
  6. KLOR-CON [Concomitant]
  7. LASIX [Concomitant]
  8. LIPITOR [Concomitant]
  9. LEXAPRO [Concomitant]
  10. BONIVA [Concomitant]

REACTIONS (1)
  - DYSPNOEA [None]
